FAERS Safety Report 9917533 (Version 4)
Quarter: 2016Q1

REPORT INFORMATION
  Report Type: Report from Study
  Country: DE (occurrence: DE)
  Receive Date: 20140221
  Receipt Date: 20160307
  Transmission Date: 20160526
  Serious: Yes (Death, Life-Threatening, Hospitalization)
  Sender: FDA-Public Use
  Company Number: DE-SA-CLOF-1001509

PATIENT
  Age: 6 Year
  Sex: Male
  Weight: 33 kg

DRUGS (8)
  1. EVOLTRA [Suspect]
     Active Substance: CLOFARABINE
     Indication: ACUTE LYMPHOCYTIC LEUKAEMIA
     Dosage: 40 MG, QDX5
     Route: 042
     Dates: start: 20101206, end: 20101210
  2. CYCLOPHOSPHAMIDE. [Suspect]
     Active Substance: CYCLOPHOSPHAMIDE
     Indication: ACUTE LYMPHOCYTIC LEUKAEMIA
     Dosage: 250 MG, QDX5
     Route: 065
     Dates: start: 20101206, end: 20101210
  3. EVOLTRA [Suspect]
     Active Substance: CLOFARABINE
     Indication: ACUTE LYMPHOCYTIC LEUKAEMIA
     Dosage: 30 MG QDX4
     Route: 042
     Dates: start: 20110110, end: 20110113
  4. ETOPOSIDE. [Suspect]
     Active Substance: ETOPOSIDE
     Indication: ACUTE LYMPHOCYTIC LEUKAEMIA
     Dosage: 100 MG, QDX5
     Route: 065
     Dates: start: 20101206, end: 20101210
  5. ETOPOSIDE. [Suspect]
     Active Substance: ETOPOSIDE
     Indication: ACUTE LYMPHOCYTIC LEUKAEMIA
     Dosage: 100 MG, QDX4
     Route: 065
     Dates: start: 20110110, end: 20110113
  6. CYCLOPHOSPHAMIDE. [Suspect]
     Active Substance: CYCLOPHOSPHAMIDE
     Indication: ACUTE LYMPHOCYTIC LEUKAEMIA
     Dosage: 250 MG, QDX4
     Route: 065
     Dates: start: 20110110, end: 20110113
  7. DOLANTIN [Concomitant]
     Active Substance: MEPERIDINE
     Indication: PAIN
     Dosage: 100 MG, UNK
     Dates: start: 20110312
  8. LASIX [Concomitant]
     Active Substance: FUROSEMIDE
     Indication: DIURETIC THERAPY
     Dosage: 30 MG, UNK
     Route: 065
     Dates: start: 20110313

REACTIONS (3)
  - Adenovirus infection [Not Recovered/Not Resolved]
  - Multiple organ dysfunction syndrome [Fatal]
  - Bone marrow failure [Not Recovered/Not Resolved]

NARRATIVE: CASE EVENT DATE: 201010
